FAERS Safety Report 4515725-7 (Version None)
Quarter: 2004Q4

REPORT INFORMATION
  Report Type: 
  Country: None (occurrence: None)
  Receive Date: 20041201
  Receipt Date: 20041124
  Transmission Date: 20050328
  Serious: Yes (Death, Hospitalization)
  Sender: FDA-Public Use
  Company Number: DE-MERCK-0411DEU00480

PATIENT
  Age: 66 Year
  Sex: Male

DRUGS (2)
  1. VIOXX [Suspect]
     Indication: MUSCULOSKELETAL PAIN
     Route: 048
     Dates: start: 20040601, end: 20040101
  2. VIOXX [Suspect]
     Route: 048
     Dates: start: 20040101

REACTIONS (2)
  - CARDIAC FAILURE [None]
  - DEATH [None]
